FAERS Safety Report 15894331 (Version 1)
Quarter: 2019Q1

REPORT INFORMATION
  Report Type: Spontaneous
  Country: US (occurrence: US)
  Receive Date: 20190131
  Receipt Date: 20190131
  Transmission Date: 20190417
  Serious: Yes (Hospitalization)
  Sender: FDA-Public Use
  Company Number: None

PATIENT
  Age: 8 Year
  Sex: Female
  Weight: 31.5 kg

DRUGS (1)
  1. CVS PHARMACY IBUPROFEN [Suspect]
     Active Substance: IBUPROFEN
     Indication: PAIN
     Route: 048
     Dates: start: 20181231, end: 20190101

REACTIONS (1)
  - Renal impairment [None]

NARRATIVE: CASE EVENT DATE: 20181231
